FAERS Safety Report 9337554 (Version 1)
Quarter: 2013Q2

REPORT INFORMATION
  Report Type: Report from Study
  Country: US (occurrence: US)
  Receive Date: 20130607
  Receipt Date: 20130607
  Transmission Date: 20140414
  Serious: Yes (Other)
  Sender: FDA-Public Use
  Company Number: US-BAXTER-2013BAX021116

PATIENT
  Sex: Male

DRUGS (1)
  1. [PSS GPN] AUTOPLEX T_HUMAN COAGULATION FACTOR VIII_330 U, 500 U, 600U, [Suspect]
     Indication: PRODUCT USED FOR UNKNOWN INDICATION
     Route: 065

REACTIONS (1)
  - Factor VIII inhibition [Not Recovered/Not Resolved]
